FAERS Safety Report 6103721-8 (Version None)
Quarter: 2009Q1

REPORT INFORMATION
  Report Type: 
  Country: None (occurrence: None)
  Receive Date: 20090305
  Receipt Date: 20090224
  Transmission Date: 20090719
  Serious: Yes (Other)
  Sender: FDA-Public Use
  Company Number: PHHY2009DE04624

PATIENT
  Sex: Female

DRUGS (14)
  1. EXELON [Suspect]
     Indication: DEMENTIA
     Dosage: 1.5 MG, QD
     Route: 048
     Dates: start: 20081012, end: 20081019
  2. EXELON [Suspect]
     Dosage: 1.5 MG, BID
     Route: 048
     Dates: start: 20081020, end: 20081225
  3. EXELON [Suspect]
     Dosage: 1.5 MG MORN+ 3 MG EVE
     Route: 048
     Dates: start: 20081226, end: 20090107
  4. EXELON [Suspect]
     Dosage: 1.5 MG, BID
     Dates: start: 20090108
  5. QUINAPRIL [Concomitant]
     Indication: HYPERTENSION
     Dosage: 1-0-0/DAY
     Route: 048
  6. METOPROLOL SUCCINATE [Concomitant]
     Indication: HYPERTENSION
     Dosage: 0.5-0-0.5/DAY
     Route: 048
  7. PRAVASTATIN [Concomitant]
     Indication: HYPERCHOLESTEROLAEMIA
     Dosage: 0-0-0.5/DAY
     Route: 048
  8. AMLODIPINE [Concomitant]
     Indication: HYPERTENSION
     Dosage: 1-0-0/DAY
     Route: 048
  9. LEVOPAR [Concomitant]
     Indication: PARKINSONISM
     Dosage: 1-1-1/DAY
     Route: 048
  10. CALCIMAGON [Concomitant]
     Indication: OSTEOPOROSIS
     Dosage: 1-0-1/DAY
     Route: 048
  11. BONIVA [Concomitant]
     Indication: OSTEOPOROSIS
     Dosage: ONCE MONTHLY
     Route: 048
  12. TILIDIN COMP [Concomitant]
     Indication: OSTEOARTHRITIS
     Dosage: 0-0-1/DAY
     Route: 048
  13. ASPIRIN [Concomitant]
     Indication: HYPERTENSION
     Dosage: 0-1-0/D
     Route: 048
  14. OXYBUTYNIN CHLORIDE [Concomitant]
     Indication: URGE INCONTINENCE
     Dosage: 0.5-0.5-0/DAY
     Route: 048

REACTIONS (12)
  - ABDOMINAL PAIN [None]
  - ANOREXIA [None]
  - ANXIETY [None]
  - ASTHENIA [None]
  - CARDIAC FLUTTER [None]
  - DEPRESSIVE SYMPTOM [None]
  - DIZZINESS [None]
  - FATIGUE [None]
  - GASTROINTESTINAL DISORDER [None]
  - NAUSEA [None]
  - RESTLESSNESS [None]
  - VOMITING [None]
